FAERS Safety Report 8392260-X (Version None)
Quarter: 2012Q2

REPORT INFORMATION
  Report Type: 
  Country: None (occurrence: None)
  Receive Date: 20120529
  Receipt Date: 20120521
  Transmission Date: 20120825
  Serious: Yes (Hospitalization, Other)
  Sender: FDA-Public Use
  Company Number: US-ASTRAZENECA-2011SE54480

PATIENT
  Age: 54 Year
  Sex: Female
  Weight: 59 kg

DRUGS (21)
  1. RADIATION [Suspect]
     Route: 065
     Dates: start: 20000101
  2. VALIUM [Concomitant]
     Route: 048
  3. SEROQUEL [Suspect]
     Indication: SCHIZOPHRENIA
     Route: 048
     Dates: start: 20020101
  4. SEROQUEL [Suspect]
     Route: 048
  5. CHEMOTHERAPY [Suspect]
     Route: 065
     Dates: start: 19960101
  6. CHEMOTHERAPY [Suspect]
     Route: 065
     Dates: start: 20000101
  7. CIPROFLOXACIN [Concomitant]
  8. 18 DIFFERENT PILLS [Concomitant]
  9. CHEMOTHERAPY [Suspect]
     Route: 065
     Dates: start: 19870101
  10. RADIATION [Suspect]
     Route: 065
     Dates: start: 19870101
  11. RADIATION [Suspect]
     Route: 065
     Dates: start: 19960101
  12. SEROQUEL [Suspect]
     Route: 048
  13. SEROQUEL [Suspect]
     Route: 048
  14. CHEMOTHERAPY [Suspect]
     Route: 065
     Dates: start: 19950101
  15. RADIATION [Suspect]
     Route: 065
     Dates: start: 19950101
  16. RADIATION [Suspect]
     Route: 065
     Dates: start: 19990101
  17. CHEMOTHERAPY [Suspect]
     Route: 065
     Dates: start: 19930101
  18. CHEMOTHERAPY [Suspect]
     Route: 065
     Dates: start: 19990101
  19. RADIATION [Suspect]
     Route: 065
     Dates: start: 19930101
  20. SEROQUEL [Suspect]
     Indication: TRANSIENT ISCHAEMIC ATTACK
     Route: 048
     Dates: start: 20020101
  21. SEROQUEL [Suspect]
     Route: 048

REACTIONS (32)
  - ANOSMIA [None]
  - AGEUSIA [None]
  - DIARRHOEA [None]
  - MYOCARDIAL INFARCTION [None]
  - IMMUNODEFICIENCY [None]
  - CONVULSION [None]
  - MOUTH HAEMORRHAGE [None]
  - NEOPLASM MALIGNANT [None]
  - SWELLING FACE [None]
  - FALL [None]
  - AGITATION [None]
  - HEADACHE [None]
  - DYSPNOEA [None]
  - ABDOMINAL DISCOMFORT [None]
  - VOMITING [None]
  - DIZZINESS [None]
  - HALLUCINATION, VISUAL [None]
  - HYPOACUSIS [None]
  - CERVIX CARCINOMA STAGE IV [None]
  - AMNESIA [None]
  - LIVER TENDERNESS [None]
  - OFF LABEL USE [None]
  - INTENTIONAL DRUG MISUSE [None]
  - MALAISE [None]
  - STAPHYLOCOCCAL INFECTION [None]
  - VISUAL ACUITY REDUCED [None]
  - OEDEMA PERIPHERAL [None]
  - SWELLING [None]
  - DEAFNESS UNILATERAL [None]
  - RADIATION INJURY [None]
  - CROHN'S DISEASE [None]
  - HAEMATEMESIS [None]
